FAERS Safety Report 17532886 (Version 3)
Quarter: 2020Q1

REPORT INFORMATION
  Report Type: Spontaneous
  Country: US (occurrence: US)
  Receive Date: 20200312
  Receipt Date: 20200313
  Transmission Date: 20200409
  Serious: No
  Sender: FDA-Public Use
  Company Number: US-PFIZER INC-2020106764

PATIENT
  Age: 72 Year
  Sex: Male
  Weight: 79 kg

DRUGS (1)
  1. INLYTA [Suspect]
     Active Substance: AXITINIB
     Dosage: UNK
     Dates: start: 201810

REACTIONS (7)
  - Skin lesion [Unknown]
  - Eyelid pain [Unknown]
  - Pruritus [Unknown]
  - Hordeolum [Unknown]
  - Peripheral swelling [Unknown]
  - Blister [Unknown]
  - Stomatitis [Unknown]
